FAERS Safety Report 14477794 (Version 1)
Quarter: 2018Q1

REPORT INFORMATION
  Report Type: Report from Study
  Country: US (occurrence: US)
  Receive Date: 20180201
  Receipt Date: 20180201
  Transmission Date: 20180509
  Serious: No
  Sender: FDA-Public Use
  Company Number: US-EXELIXIS-CABO-17009848

PATIENT
  Sex: Female

DRUGS (3)
  1. SUTENT [Concomitant]
     Active Substance: SUNITINIB MALATE
  2. CABOMETYX [Suspect]
     Active Substance: CABOZANTINIB S-MALATE
     Indication: METASTASES TO PLEURA
     Dosage: 20 MG, QD
     Route: 048
     Dates: end: 20170713
  3. CABOMETYX [Suspect]
     Active Substance: CABOZANTINIB S-MALATE
     Indication: RENAL CANCER
     Dosage: 40 MG, QD
     Route: 048
     Dates: start: 201611

REACTIONS (15)
  - Glossodynia [Unknown]
  - Fatigue [Unknown]
  - Metastases to bone [Unknown]
  - Lymphadenopathy mediastinal [Unknown]
  - Decreased appetite [Unknown]
  - Blood thyroid stimulating hormone abnormal [Unknown]
  - Neuropathy peripheral [Unknown]
  - Cough [Unknown]
  - Weight decreased [Unknown]
  - Abdominal pain [Unknown]
  - Nausea [Unknown]
  - Cancer pain [Unknown]
  - Dyspnoea [Unknown]
  - Constipation [Unknown]
  - Hilar lymphadenopathy [Unknown]
